FAERS Safety Report 10900002 (Version 4)
Quarter: 2015Q2

REPORT INFORMATION
  Report Type: Spontaneous
  Country: IT (occurrence: IT)
  Receive Date: 20150310
  Receipt Date: 20150522
  Transmission Date: 20150821
  Serious: Yes (Hospitalization, Other)
  Sender: FDA-Public Use
  Company Number: IT-UCBSA-2015005977

PATIENT
  Age: 75 Year
  Sex: Male

DRUGS (16)
  1. LANSOPRAZOLO [Suspect]
     Active Substance: LANSOPRAZOLE
     Indication: HYPERCHOLESTEROLAEMIA
     Dosage: DAILY DOSE: 15 MG
  2. DILATREND [Suspect]
     Active Substance: CARVEDILOL
     Dosage: 50 MG, TOTAL
     Route: 048
     Dates: start: 20150209, end: 20150209
  3. LASIX [Suspect]
     Active Substance: FUROSEMIDE
     Indication: HYPERTENSION
     Dosage: DAILY DOSE: 25 MG/DAY
  4. ZOLPIDEM TARTRATE. [Suspect]
     Active Substance: ZOLPIDEM TARTRATE
     Indication: ANXIETY
     Dosage: DAILY DOSE:10 MG
  5. LASIX [Suspect]
     Active Substance: FUROSEMIDE
     Dosage: 100 MG, TOTAL
     Route: 048
     Dates: start: 20150209, end: 20150209
  6. SIVASTIN [Suspect]
     Active Substance: SIMVASTATIN
     Dosage: 80 MG, TOTAL
     Route: 048
     Dates: start: 20150209, end: 20150209
  7. LANSOPRAZOLO [Suspect]
     Active Substance: LANSOPRAZOLE
     Dosage: 60 MG, TOTAL
     Route: 048
     Dates: start: 20150209, end: 20150209
  8. NORVASC [Suspect]
     Active Substance: AMLODIPINE BESYLATE
     Dosage: 20 MG, TOTAL
     Route: 048
     Dates: start: 20150209, end: 20150209
  9. KEPPRA [Suspect]
     Active Substance: LEVETIRACETAM
     Dosage: 2 G, TOTAL
     Route: 048
     Dates: start: 20150209, end: 20150209
  10. ZOLPIDEM TARTRATE. [Suspect]
     Active Substance: ZOLPIDEM TARTRATE
     Dosage: 40 MG, TOTAL
     Route: 048
     Dates: start: 20150209, end: 20150209
  11. XANAX [Suspect]
     Active Substance: ALPRAZOLAM
     Indication: ANXIETY
     Dosage: 0.5 MG, 2X/DAY (BID)
  12. SIVASTIN [Suspect]
     Active Substance: SIMVASTATIN
     Indication: HYPERCHOLESTEROLAEMIA
     Dosage: DAILY DOSE: 20 MG
  13. KEPPRA [Suspect]
     Active Substance: LEVETIRACETAM
     Indication: EPILEPSY
     Dosage: DAILY DOSE: 500 MG/DAY
     Route: 048
  14. DILATREND [Suspect]
     Active Substance: CARVEDILOL
     Indication: HYPERTENSION
     Dosage: 6.25 MG, 2X/DAY (BID)
  15. NORVASC [Suspect]
     Active Substance: AMLODIPINE BESYLATE
     Indication: HYPERTENSION
     Dosage: DAILY DOSE: 5 MG
  16. XANAX [Suspect]
     Active Substance: ALPRAZOLAM
     Dosage: 4 MG, TOTAL
     Route: 048
     Dates: start: 20150209, end: 20150209

REACTIONS (2)
  - Drug abuse [Unknown]
  - Syncope [Recovered/Resolved]

NARRATIVE: CASE EVENT DATE: 20150209
